FAERS Safety Report 13496319 (Version 1)
Quarter: 2017Q2

REPORT INFORMATION
  Report Type: Spontaneous
  Country: US (occurrence: US)
  Receive Date: 20170428
  Receipt Date: 20170428
  Transmission Date: 20170830
  Serious: Yes (Other)
  Sender: FDA-Public Use
  Company Number: None

PATIENT
  Age: 26 Year
  Sex: Female
  Weight: 63.45 kg

DRUGS (4)
  1. PAXIL [Concomitant]
     Active Substance: PAROXETINE HYDROCHLORIDE
  2. LANTUS [Concomitant]
     Active Substance: INSULIN GLARGINE
  3. MONO-LINYAH [Suspect]
     Active Substance: ETHINYL ESTRADIOL\NORGESTIMATE
     Indication: MENSTRUATION IRREGULAR
     Dosage: ?          QUANTITY:1 TABLET(S);?
     Route: 048
     Dates: start: 20170324, end: 20170427
  4. HUMALOG [Concomitant]
     Active Substance: INSULIN LISPRO

REACTIONS (10)
  - Decreased appetite [None]
  - Hypoaesthesia oral [None]
  - Vomiting [None]
  - Fatigue [None]
  - Malaise [None]
  - Hypoaesthesia [None]
  - Paraesthesia oral [None]
  - Asthenia [None]
  - Paraesthesia [None]
  - Emotional distress [None]

NARRATIVE: CASE EVENT DATE: 20170424
